FAERS Safety Report 19372533 (Version 1)
Quarter: 2021Q2

REPORT INFORMATION
  Report Type: Spontaneous
  Country: PL (occurrence: PL)
  Receive Date: 20210604
  Receipt Date: 20210604
  Transmission Date: 20210717
  Serious: Yes (Other)
  Sender: FDA-Public Use
  Company Number: PL-ORGANON-O2106POL000120

PATIENT
  Age: 33 Year
  Sex: Female

DRUGS (1)
  1. IMPLANON NXT [Suspect]
     Active Substance: ETONOGESTREL
     Indication: CONTRACEPTION
     Dosage: UNK (DOSE AND DESCRIPTION NOT REPORTED)
     Dates: start: 20171113

REACTIONS (5)
  - Heavy menstrual bleeding [Unknown]
  - Malaise [Unknown]
  - Dyspnoea [Unknown]
  - Chest discomfort [Unknown]
  - Hot flush [Unknown]
